FAERS Safety Report 6493177-8 (Version None)
Quarter: 2009Q4

REPORT INFORMATION
  Report Type: 
  Country: None (occurrence: None)
  Receive Date: 20091214
  Receipt Date: 20091203
  Transmission Date: 20100525
  Serious: Yes (Other)
  Sender: FDA-Public Use
  Company Number: US-BAYER-200941770NA

PATIENT
  Sex: Female

DRUGS (1)
  1. MIRENA [Suspect]
     Indication: DRUG USE FOR UNKNOWN INDICATION
     Dosage: CONTINUOUS
     Route: 015
     Dates: start: 20080821, end: 20090820

REACTIONS (6)
  - ABDOMINAL PAIN LOWER [None]
  - DEVICE BREAKAGE [None]
  - DEVICE DISLOCATION [None]
  - OVARIAN CYST [None]
  - PROCEDURAL PAIN [None]
  - UTERINE PERFORATION [None]
